FAERS Safety Report 9866467 (Version 1)
Quarter: 2014Q1

REPORT INFORMATION
  Report Type: Spontaneous
  Country: US (occurrence: US)
  Receive Date: 20140204
  Receipt Date: 20140204
  Transmission Date: 20141002
  Serious: Yes (Other)
  Sender: FDA-Public Use
  Company Number: US-ROCHE-1343457

PATIENT
  Sex: Female

DRUGS (32)
  1. XOLAIR [Suspect]
     Indication: PRODUCT USED FOR UNKNOWN INDICATION
     Route: 065
  2. XOLAIR [Suspect]
     Route: 065
  3. SINGULAIR [Concomitant]
  4. SPIRIVA [Concomitant]
  5. SYMBICORT [Concomitant]
  6. PREDNISONE [Concomitant]
     Route: 065
  7. PREDNISONE [Concomitant]
     Route: 065
  8. QVAR [Concomitant]
  9. METHOTREXATE [Concomitant]
  10. GAMMAGARD [Concomitant]
  11. GUAIFENESIN [Concomitant]
  12. ATROVENT [Concomitant]
     Route: 065
  13. ASTEPRO [Concomitant]
     Route: 065
  14. VERAMYST [Concomitant]
     Route: 065
  15. CLINDAMYCIN [Concomitant]
  16. BIAXIN [Concomitant]
  17. CETIRIZINE [Concomitant]
  18. SKELAXIN [Concomitant]
  19. MIRALAX [Concomitant]
  20. PAMELOR [Concomitant]
  21. PROTONIX (UNITED STATES) [Concomitant]
  22. FORTEO [Concomitant]
     Route: 065
  23. CYMBALTA [Concomitant]
  24. ZOFRAN [Concomitant]
  25. FLAGYL [Concomitant]
  26. HYDROCHLOROTHIAZIDE [Concomitant]
  27. INSULIN [Concomitant]
  28. AMBIEN [Concomitant]
  29. XANAX [Concomitant]
  30. TOPAMAX [Concomitant]
  31. GABAPENTIN [Concomitant]
  32. OXYCONTIN [Concomitant]

REACTIONS (3)
  - Asthma [Unknown]
  - Malaise [Unknown]
  - Wheezing [Unknown]
